FAERS Safety Report 9450159 (Version 1)
Quarter: 2013Q3

REPORT INFORMATION
  Report Type: Spontaneous
  Country: US (occurrence: US)
  Receive Date: 20130809
  Receipt Date: 20130809
  Transmission Date: 20140515
  Serious: No
  Sender: FDA-Public Use
  Company Number: US-GLAXOSMITHKLINE-A1004379A

PATIENT
  Age: 56 Year
  Sex: Female

DRUGS (6)
  1. REQUIP XL [Suspect]
     Indication: RESTLESS LEGS SYNDROME
     Dosage: 2MG TWICE PER DAY
     Route: 048
     Dates: start: 20121018
  2. DEXILANT [Concomitant]
  3. EFFEXOR XR [Concomitant]
  4. METFORMIN [Concomitant]
  5. APIDRA [Concomitant]
  6. HCTZ [Concomitant]

REACTIONS (4)
  - Drug ineffective [Unknown]
  - Posture abnormal [Unknown]
  - Formication [Unknown]
  - Restless legs syndrome [Unknown]
